FAERS Safety Report 14355191 (Version 3)
Quarter: 2018Q1

REPORT INFORMATION
  Report Type: Report from Study
  Country: KR (occurrence: KR)
  Receive Date: 20180105
  Receipt Date: 20180116
  Transmission Date: 20180509
  Serious: Yes (Hospitalization)
  Sender: FDA-Public Use
  Company Number: KR-ASTRAZENECA-2018SE00004

PATIENT
  Age: 25869 Day
  Sex: Female

DRUGS (20)
  1. AZD6094 [Suspect]
     Active Substance: SAVOLITINIB
     Indication: NON-SMALL CELL LUNG CANCER
     Route: 048
     Dates: start: 20171206, end: 20171218
  2. AZD6094 [Suspect]
     Active Substance: SAVOLITINIB
     Indication: EGFR GENE MUTATION
     Route: 048
     Dates: start: 20171226, end: 20171228
  3. MEGACE [Concomitant]
     Active Substance: MEGESTROL ACETATE
     Indication: DECREASED APPETITE
     Route: 048
     Dates: start: 20171219, end: 20171227
  4. PROPACETAMOL [Concomitant]
     Active Substance: PROPACETAMOL
     Indication: PYREXIA
     Dosage: 1.0G ONCE/SINGLE ADMINISTRATION
     Route: 042
     Dates: start: 20171228, end: 20171228
  5. TAGRISSO [Suspect]
     Active Substance: OSIMERTINIB
     Indication: EGFR GENE MUTATION
     Route: 048
     Dates: start: 20171206, end: 20171218
  6. CITOPCIN [Concomitant]
     Indication: SEPTIC SHOCK
     Route: 042
     Dates: start: 20171228, end: 20171228
  7. AZD6094 [Suspect]
     Active Substance: SAVOLITINIB
     Indication: NON-SMALL CELL LUNG CANCER
     Route: 048
     Dates: start: 20171226, end: 20171228
  8. TAGRISSO [Suspect]
     Active Substance: OSIMERTINIB
     Indication: NON-SMALL CELL LUNG CANCER
     Route: 048
     Dates: start: 20171226, end: 20171228
  9. PENIRAMIN [Concomitant]
     Indication: RASH MACULO-PAPULAR
     Route: 048
     Dates: start: 20171216, end: 20171218
  10. CHLORPHENIRAMINE MALEATE. [Concomitant]
     Active Substance: CHLORPHENIRAMINE MALEATE
     Indication: RASH MACULO-PAPULAR
     Dosage: 4.0MG ONCE/SINGLE ADMINISTRATION
     Route: 042
     Dates: start: 20171228, end: 20171228
  11. PREDNISOLONE. [Concomitant]
     Active Substance: PREDNISOLONE
     Indication: RASH MACULO-PAPULAR
     Route: 048
     Dates: start: 20171219, end: 20171227
  12. TAGRISSO [Suspect]
     Active Substance: OSIMERTINIB
     Indication: NON-SMALL CELL LUNG CANCER
     Route: 048
     Dates: start: 20171206, end: 20171218
  13. CODEINE PHOSPHATE [Concomitant]
     Active Substance: CODEINE PHOSPHATE
     Indication: COUGH
     Route: 048
     Dates: start: 20171205, end: 20171227
  14. CHLORPHENIRAMINE MALEATE. [Concomitant]
     Active Substance: CHLORPHENIRAMINE MALEATE
     Indication: RASH MACULO-PAPULAR
     Route: 042
     Dates: start: 20171216, end: 20171217
  15. TAGRISSO [Suspect]
     Active Substance: OSIMERTINIB
     Indication: EGFR GENE MUTATION
     Route: 048
     Dates: start: 20171226, end: 20171228
  16. MEGACE [Concomitant]
     Active Substance: MEGESTROL ACETATE
     Indication: DECREASED APPETITE
     Route: 048
     Dates: start: 20171205, end: 20171215
  17. STILLEN [Concomitant]
     Indication: ULCER
     Route: 048
     Dates: start: 20171219, end: 20171227
  18. DEXAMETHASONE. [Concomitant]
     Active Substance: DEXAMETHASONE
     Indication: RASH MACULO-PAPULAR
     Dosage: 10.0MG ONCE/SINGLE ADMINISTRATION
     Route: 042
     Dates: start: 20171219, end: 20171219
  19. PROPACETAMOL [Concomitant]
     Active Substance: PROPACETAMOL
     Indication: PYREXIA
     Dosage: 1.0G ONCE/SINGLE ADMINISTRATION
     Route: 042
     Dates: start: 20171217, end: 20171217
  20. AZD6094 [Suspect]
     Active Substance: SAVOLITINIB
     Indication: EGFR GENE MUTATION
     Route: 048
     Dates: start: 20171206, end: 20171218

REACTIONS (1)
  - Drug hypersensitivity [Not Recovered/Not Resolved]

NARRATIVE: CASE EVENT DATE: 20171229
